FAERS Safety Report 8176588-4 (Version None)
Quarter: 2012Q1

REPORT INFORMATION
  Report Type: 
  Country: None (occurrence: None)
  Receive Date: 20120301
  Receipt Date: 20111220
  Transmission Date: 20120608
  Serious: Yes (Hospitalization)
  Sender: FDA-Public Use
  Company Number: CA-JNJFOC-20111110199

PATIENT
  Sex: Female
  Weight: 62 kg

DRUGS (6)
  1. HYDROCORTISONE [Concomitant]
     Route: 065
  2. POTASSIUM CHLORIDE [Concomitant]
     Route: 065
  3. MAGNESIUM [Concomitant]
     Route: 065
  4. INFLIXIMAB [Suspect]
     Indication: CROHN'S DISEASE
     Route: 042
     Dates: start: 20070131, end: 20111124
  5. ANTIBIOTICS [Concomitant]
     Route: 065
  6. PAIN MEDICATION NOS [Concomitant]
     Indication: PAIN
     Route: 065

REACTIONS (2)
  - ABSCESS [None]
  - COLOSTOMY [None]
